FAERS Safety Report 10181768 (Version 1)
Quarter: 2014Q2

REPORT INFORMATION
  Report Type: Spontaneous
  Country: CH (occurrence: CH)
  Receive Date: 20140519
  Receipt Date: 20140519
  Transmission Date: 20141212
  Serious: Yes (Other)
  Sender: FDA-Public Use
  Company Number: CH-WATSON-2014-10190

PATIENT
  Age: 48 Year
  Sex: Male

DRUGS (1)
  1. HYDROCHLOROTHIAZIDE (UNKNOWN) [Suspect]
     Indication: HYPERTENSION
     Dosage: UNKNOWN
     Route: 065

REACTIONS (2)
  - Choroidal effusion [Recovered/Resolved]
  - Detachment of retinal pigment epithelium [Recovered/Resolved]
